FAERS Safety Report 8802961 (Version 2)
Quarter: 2012Q4

REPORT INFORMATION
  Report Type: Report from Study
  Country: US (occurrence: US)
  Receive Date: 20120922
  Receipt Date: 20121023
  Transmission Date: 20130627
  Serious: Yes (Other)
  Sender: FDA-Public Use
  Company Number: US-US-EMD SERONO, INC.-7162464

PATIENT
  Age: 8 Year
  Sex: Male
  Weight: 17 kg

DRUGS (1)
  1. SAIZEN [(SOMATROPIN (RDNA ORIGIN) FOR INJECTION)] [Suspect]
     Indication: GROWTH HORMONE DEFICIENCY
     Route: 058
     Dates: start: 20101110

REACTIONS (2)
  - Pneumonia [Recovered/Resolved]
  - Malnutrition [Unknown]
